FAERS Safety Report 11516024 (Version 1)
Quarter: 2015Q3

REPORT INFORMATION
  Report Type: Spontaneous
  Country: US (occurrence: US)
  Receive Date: 20150917
  Receipt Date: 20150917
  Transmission Date: 20151125
  Serious: Yes (Other)
  Sender: FDA-Public Use
  Company Number: US-TAKEDA-2014TUS004668

PATIENT

DRUGS (3)
  1. DIABETA                            /00145301/ [Concomitant]
     Dosage: UNK
     Dates: start: 2000, end: 2009
  2. GLUCOTROL [Concomitant]
     Active Substance: GLIPIZIDE
     Dosage: UNK
     Dates: start: 2010, end: 201405
  3. ACTOS [Suspect]
     Active Substance: PIOGLITAZONE HYDROCHLORIDE
     Indication: TYPE 2 DIABETES MELLITUS
     Dosage: 45 MG, UNK
     Route: 048
     Dates: start: 20010828, end: 20051012

REACTIONS (2)
  - Cardiac failure congestive [Unknown]
  - Bladder cancer [Unknown]

NARRATIVE: CASE EVENT DATE: 2007
